FAERS Safety Report 17848049 (Version 1)
Quarter: 2020Q2

REPORT INFORMATION
  Report Type: Spontaneous
  Country: DE (occurrence: DE)
  Receive Date: 20200601
  Receipt Date: 20200601
  Transmission Date: 20200714
  Serious: Yes (Death)
  Sender: FDA-Public Use
  Company Number: DE-EXELIXIS-CABO-20030184

PATIENT
  Sex: Male

DRUGS (9)
  1. TAVANIC [Concomitant]
     Active Substance: LEVOFLOXACIN
  2. AKTREN [Concomitant]
  3. METHADONE [Concomitant]
     Active Substance: METHADONE HYDROCHLORIDE
  4. XGEVA [Concomitant]
     Active Substance: DENOSUMAB
     Indication: METASTASES TO BONE
  5. CABOMETYX [Suspect]
     Active Substance: CABOZANTINIB S-MALATE
     Indication: RENAL CELL CARCINOMA
     Dosage: 40 MG
     Dates: start: 20180915
  6. ERYTHROPOETIN [Concomitant]
     Active Substance: ERYTHROPOIETIN
  7. COTRIM FORTE [Concomitant]
     Active Substance: SULFAMETHOXAZOLE\TRIMETHOPRIM
  8. CIPROFLOXACIN. [Concomitant]
     Active Substance: CIPROFLOXACIN
  9. CONCOR [Concomitant]
     Active Substance: BISOPROLOL FUMARATE
     Indication: HYPERTENSION

REACTIONS (9)
  - Gastric disorder [Fatal]
  - Increased viscosity of upper respiratory secretion [Fatal]
  - Decreased appetite [Fatal]
  - Hiccups [Fatal]
  - Fatigue [Fatal]
  - Cholangitis [Fatal]
  - Asthenia [Fatal]
  - Herpes zoster [Fatal]
  - Weight decreased [Fatal]

NARRATIVE: CASE EVENT DATE: 2018
